FAERS Safety Report 8113117-5 (Version None)
Quarter: 2012Q1

REPORT INFORMATION
  Report Type: 
  Country: None (occurrence: None)
  Receive Date: 20120203
  Receipt Date: 20120120
  Transmission Date: 20120608
  Serious: Yes (Other)
  Sender: FDA-Public Use
  Company Number: ES-WATSON-2012-01670

PATIENT
  Age: 69 Year
  Sex: Male

DRUGS (2)
  1. DILTIAZEM HYDROCHLORIDE [Suspect]
     Indication: PRODUCT USED FOR UNKNOWN INDICATION
  2. FLUTAMIDE [Suspect]
     Indication: PROSTATE CANCER
     Dosage: 750 MG, DAILY

REACTIONS (2)
  - HEPATOTOXICITY [None]
  - CHOLESTASIS [None]
